FAERS Safety Report 14914681 (Version 1)
Quarter: 2018Q2

REPORT INFORMATION
  Report Type: Spontaneous
  Country: US (occurrence: US)
  Receive Date: 20180501
  Receipt Date: 20180501
  Transmission Date: 20180711
  Serious: Yes (Hospitalization)
  Sender: FDA-Public Use
  Company Number: None

PATIENT
  Age: 43 Year
  Sex: Female

DRUGS (3)
  1. NASACORT [Concomitant]
     Active Substance: TRIAMCINOLONE ACETONIDE
  2. ENBREL [Suspect]
     Active Substance: ETANERCEPT
     Indication: RHEUMATOID ARTHRITIS
     Route: 058
     Dates: start: 20141121
  3. VITAMIN 3 [Concomitant]

REACTIONS (5)
  - Condition aggravated [None]
  - Musculoskeletal stiffness [None]
  - Pain [None]
  - Pneumonia [None]
  - Surgery [None]

NARRATIVE: CASE EVENT DATE: 201711
